FAERS Safety Report 11834426 (Version 4)
Quarter: 2020Q4

REPORT INFORMATION
  Report Type: Spontaneous
  Country: US (occurrence: US)
  Receive Date: 20151214
  Receipt Date: 20201216
  Transmission Date: 20210113
  Serious: Yes (Death, Hospitalization)
  Sender: FDA-Public Use
  Company Number: US-JNJFOC-20151124905

PATIENT
  Age: 70 Year
  Sex: Male

DRUGS (18)
  1. XARELTO [Suspect]
     Active Substance: RIVAROXABAN
     Indication: THROMBOSIS PROPHYLAXIS
     Route: 048
     Dates: start: 20120306, end: 20121203
  2. POTASSIUM [Concomitant]
     Active Substance: POTASSIUM
  3. VITAMIN D [ERGOCALCIFEROL] [Concomitant]
     Active Substance: ERGOCALCIFEROL
  4. XARELTO [Suspect]
     Active Substance: RIVAROXABAN
     Indication: CEREBROVASCULAR ACCIDENT PROPHYLAXIS
     Route: 048
     Dates: start: 2011
  5. ASPRIN [Suspect]
     Active Substance: ASPIRIN
     Indication: ATRIAL FIBRILLATION
     Route: 065
  6. INSULIN [Concomitant]
     Active Substance: INSULIN NOS
  7. XARELTO [Suspect]
     Active Substance: RIVAROXABAN
     Indication: ATRIAL FIBRILLATION
  8. NIACIN. [Concomitant]
     Active Substance: NIACIN
  9. LASIX [Concomitant]
     Active Substance: FUROSEMIDE
  10. IRON [Concomitant]
     Active Substance: IRON
  11. DIOVAN [Concomitant]
     Active Substance: VALSARTAN
  12. NEURONTIN [Concomitant]
     Active Substance: GABAPENTIN
  13. LEVEMIR [Concomitant]
     Active Substance: INSULIN DETEMIR
  14. METFORMIN [Concomitant]
     Active Substance: METFORMIN HYDROCHLORIDE
  15. ATENOLOL. [Concomitant]
     Active Substance: ATENOLOL
  16. ATORVASTATIN [Concomitant]
     Active Substance: ATORVASTATIN
  17. CALCIUM [Concomitant]
     Active Substance: CALCIUM
  18. OXYCODONE [Concomitant]
     Active Substance: OXYCODONE

REACTIONS (1)
  - Gastrointestinal haemorrhage [Recovered/Resolved]

NARRATIVE: CASE EVENT DATE: 20121203
